FAERS Safety Report 11252908 (Version 2)
Quarter: 2016Q1

REPORT INFORMATION
  Report Type: Report from Study
  Country: ES (occurrence: ES)
  Receive Date: 20150708
  Receipt Date: 20160205
  Transmission Date: 20160525
  Serious: Yes (Death, Hospitalization)
  Sender: FDA-Public Use
  Company Number: PHHY2014ES128444

PATIENT
  Age: 68 Year
  Sex: Female
  Weight: 57 kg

DRUGS (3)
  1. LDK378 [Suspect]
     Active Substance: CERITINIB
     Indication: NON-SMALL CELL LUNG CANCER
     Dosage: 450 MG, UNK
     Route: 048
     Dates: start: 20140802, end: 20140824
  2. DEXAMETHASONE. [Concomitant]
     Active Substance: DEXAMETHASONE
     Indication: MYOPATHY
     Dosage: 1 MG, QD
     Route: 065
     Dates: start: 20140724
  3. LDK378 [Suspect]
     Active Substance: CERITINIB
     Indication: DISEASE PROGRESSION
     Dosage: 300 MG, QD
     Route: 048
     Dates: start: 20140913, end: 20141008

REACTIONS (5)
  - Malignant neoplasm progression [Fatal]
  - Non-small cell lung cancer [Fatal]
  - General physical health deterioration [Fatal]
  - Fatigue [Fatal]
  - Hyperglycaemia [Recovered/Resolved]

NARRATIVE: CASE EVENT DATE: 20140823
